FAERS Safety Report 6218887-9 (Version None)
Quarter: 2009Q2

REPORT INFORMATION
  Report Type: 
  Country: None (occurrence: None)
  Receive Date: 20090608
  Receipt Date: 20090526
  Transmission Date: 20091009
  Serious: Yes (Hospitalization)
  Sender: FDA-Public Use
  Company Number: IT-MYLANLABS-2009S1009189

PATIENT
  Age: 49 Year
  Sex: Male

DRUGS (3)
  1. DULOXETINE HYDROCHLORIDE [Suspect]
     Indication: DEPRESSION
     Dosage: 60 MG/DAY
     Dates: start: 20060801
  2. PAROXETINE HCL [Suspect]
     Indication: DEPRESSION
     Dosage: 20 MG/DAY
     Dates: start: 20070401
  3. TOPIRAMATE [Concomitant]
     Indication: EPILEPSY
     Dosage: 200 MG/DAY
     Dates: start: 20060201

REACTIONS (3)
  - EPILEPSY [None]
  - GRAND MAL CONVULSION [None]
  - MYOCLONUS [None]
